FAERS Safety Report 26108200 (Version 1)
Quarter: 2025Q4

REPORT INFORMATION
  Report Type: Report from Study
  Country: CA (occurrence: CA)
  Receive Date: 20251201
  Receipt Date: 20251201
  Transmission Date: 20260118
  Serious: Yes (Hospitalization)
  Sender: TEVA
  Company Number: CA-TEVA-VS-3397562

PATIENT
  Age: 6 Year
  Sex: Male

DRUGS (12)
  1. MYCOPHENOLATE MOFETIL [Suspect]
     Active Substance: MYCOPHENOLATE MOFETIL
     Indication: Product used for unknown indication
     Route: 048
  2. CALCIUM [Concomitant]
     Active Substance: CALCIUM
     Indication: Product used for unknown indication
     Route: 065
  3. ADALIMUMAB [Concomitant]
     Active Substance: ADALIMUMAB
     Indication: Product used for unknown indication
     Dosage: DOSE FORM:SOLUTION SUBCUTANEOUS
     Route: 065
  4. ANAKINRA [Concomitant]
     Active Substance: ANAKINRA
     Indication: Product used for unknown indication
     Route: 065
  5. ACTEMRA [Suspect]
     Active Substance: TOCILIZUMAB
     Indication: Systemic inflammatory response syndrome
     Route: 058
  6. DEXAMETHASONE [Concomitant]
     Active Substance: DEXAMETHASONE
     Indication: Product used for unknown indication
     Route: 065
  7. DEXAMETHASONE [Concomitant]
     Active Substance: DEXAMETHASONE
     Indication: Product used for unknown indication
     Route: 065
  8. INFLIXIMAB [Concomitant]
     Active Substance: INFLIXIMAB
     Indication: Product used for unknown indication
     Route: 065
  9. DABIGATRAN [Concomitant]
     Active Substance: DABIGATRAN
     Indication: Product used for unknown indication
     Route: 065
  10. OMEPRAZOLE [Concomitant]
     Active Substance: OMEPRAZOLE
     Indication: Product used for unknown indication
     Route: 065
  11. CHOLECALCIFEROL [Concomitant]
     Active Substance: CHOLECALCIFEROL
     Indication: Product used for unknown indication
     Route: 065
  12. BARICITINIB [Concomitant]
     Active Substance: BARICITINIB
     Indication: Product used for unknown indication
     Route: 065

REACTIONS (31)
  - Cerebral disorder [Unknown]
  - Photophobia [Unknown]
  - Speech disorder [Unknown]
  - Toxicity to various agents [Unknown]
  - Ill-defined disorder [Unknown]
  - Blood disorder [Unknown]
  - Pain in extremity [Unknown]
  - Peripheral vein thrombosis [Unknown]
  - Vomiting [Unknown]
  - Headache [Unknown]
  - Off label use [Unknown]
  - Eye swelling [Unknown]
  - Movement disorder [Unknown]
  - Psychogenic seizure [Unknown]
  - Cardiac disorder [Unknown]
  - Tachycardia [Unknown]
  - Arthralgia [Unknown]
  - Optic neuritis [Unknown]
  - Weight increased [Unknown]
  - Upper respiratory tract infection [Unknown]
  - Depressed level of consciousness [Unknown]
  - Ocular hyperaemia [Unknown]
  - Eye pain [Unknown]
  - Obstructive sleep apnoea syndrome [Unknown]
  - Pyrexia [Unknown]
  - Feeding disorder [Unknown]
  - Parotitis [Unknown]
  - Abdominal pain [Unknown]
  - Iridocyclitis [Unknown]
  - Treatment failure [Unknown]
  - Inflammatory marker increased [Unknown]
